FAERS Safety Report 5808940-3 (Version None)
Quarter: 2008Q3

REPORT INFORMATION
  Report Type: 
  Country: None (occurrence: None)
  Receive Date: 20080714
  Receipt Date: 20080708
  Transmission Date: 20090109
  Serious: Yes (Life-Threatening, Hospitalization)
  Sender: FDA-Public Use
  Company Number: ES-ROCHE-558010

PATIENT
  Age: 80 Year
  Sex: Female

DRUGS (6)
  1. SUTRIL [Suspect]
     Route: 048
  2. CARVEDILOL [Interacting]
     Dosage: DRUG NAME: COROPRES 25
     Route: 048
     Dates: end: 20080301
  3. DIGOXIN [Interacting]
     Indication: ATRIAL FIBRILLATION
     Route: 048
  4. ALDACTONE [Interacting]
     Dosage: FORM FILM COATED TABS
     Route: 048
  5. SINTROM [Concomitant]
     Indication: ATRIAL FIBRILLATION
     Route: 048
  6. ALLOPURINOL [Concomitant]
     Indication: GOUT
     Route: 048

REACTIONS (6)
  - BRADYCARDIA [None]
  - CARDIOACTIVE DRUG LEVEL INCREASED [None]
  - DRUG INTERACTION [None]
  - DYSPNOEA [None]
  - ORTHOPNOEA [None]
  - VOMITING [None]
